FAERS Safety Report 11124681 (Version 1)
Quarter: 2015Q2

REPORT INFORMATION
  Report Type: Spontaneous
  Country: BR (occurrence: BR)
  Receive Date: 20150520
  Receipt Date: 20150520
  Transmission Date: 20150821
  Serious: Yes (Other)
  Sender: FDA-Public Use
  Company Number: BR-JNJFOC-20150511129

PATIENT
  Sex: Male

DRUGS (3)
  1. REMICADE [Suspect]
     Active Substance: INFLIXIMAB
     Indication: COLITIS
     Route: 042
     Dates: start: 20150416
  2. SOLU-CORTEF [Concomitant]
     Active Substance: HYDROCORTISONE SODIUM SUCCINATE
     Indication: PREMEDICATION
     Route: 065
  3. REMICADE [Suspect]
     Active Substance: INFLIXIMAB
     Indication: COLITIS
     Route: 042

REACTIONS (8)
  - Feeling abnormal [Unknown]
  - Skin discolouration [Unknown]
  - Unevaluable event [Unknown]
  - Dyspnoea [Unknown]
  - Treatment noncompliance [Unknown]
  - Feeling hot [Unknown]
  - Fistula [Unknown]
  - Infusion related reaction [Unknown]
